FAERS Safety Report 6968289-2 (Version None)
Quarter: 2010Q3

REPORT INFORMATION
  Report Type: 
  Country: None (occurrence: None)
  Receive Date: 20100901
  Receipt Date: 20100825
  Transmission Date: 20110219
  Serious: Yes (Hospitalization)
  Sender: FDA-Public Use
  Company Number: USA/USA/10/0015217

PATIENT
  Age: 71 Year
  Sex: Female

DRUGS (2)
  1. CIPRO [Suspect]
     Indication: INFECTION
     Dosage: 2 IN 1 D, PER ORAL
     Route: 048
     Dates: start: 20100714, end: 20100722
  2. NORVASC [Concomitant]

REACTIONS (5)
  - ARTHROPATHY [None]
  - DYSSTASIA [None]
  - FALL [None]
  - GAIT DISTURBANCE [None]
  - TENDON DISORDER [None]
